FAERS Safety Report 6635573-1 (Version None)
Quarter: 2010Q1

REPORT INFORMATION
  Report Type: 
  Country: None (occurrence: None)
  Receive Date: 20100311
  Receipt Date: 20100311
  Transmission Date: 20100710
  Serious: Yes (Life-Threatening)
  Sender: FDA-Public Use
  Company Number: None

PATIENT
  Age: 41 Year
  Sex: Female
  Weight: 104 kg

DRUGS (2)
  1. NEULASTA [Suspect]
     Indication: NEUTROPENIA
     Dosage: 6MG ONE TIME SQ
     Route: 058
     Dates: start: 20100105, end: 20100105
  2. NEULASTA [Suspect]
     Indication: PROPHYLAXIS
     Dosage: 6MG ONE TIME SQ
     Route: 058
     Dates: start: 20100105, end: 20100105

REACTIONS (4)
  - DIZZINESS [None]
  - DYSPNOEA [None]
  - HEADACHE [None]
  - RASH [None]
